FAERS Safety Report 18636422 (Version 1)
Quarter: 2020Q4

REPORT INFORMATION
  Report Type: Report from Study
  Country: US (occurrence: US)
  Receive Date: 20201218
  Receipt Date: 20201218
  Transmission Date: 20210114
  Serious: No
  Sender: FDA-Public Use
  Company Number: US-REGENERON PHARMACEUTICALS, INC.-2020-41309

PATIENT

DRUGS (3)
  1. EYLEA [Suspect]
     Active Substance: AFLIBERCEPT
     Indication: NEOVASCULAR AGE-RELATED MACULAR DEGENERATION
     Dosage: 2 MG/0.05ML 1 SYRINGE INTO THE RIGHT EYE Q4W
     Route: 031
     Dates: start: 20181231
  2. FISH OIL [Concomitant]
     Active Substance: FISH OIL
     Indication: PRODUCT USED FOR UNKNOWN INDICATION
  3. EYLEA [Suspect]
     Active Substance: AFLIBERCEPT
     Indication: CHOROIDAL NEOVASCULARISATION

REACTIONS (1)
  - Product dose omission issue [Recovered/Resolved]
